FAERS Safety Report 24332848 (Version 1)
Quarter: 2024Q3

REPORT INFORMATION
  Report Type: Report from Study
  Country: IT (occurrence: IT)
  Receive Date: 20240918
  Receipt Date: 20240918
  Transmission Date: 20241016
  Serious: Yes (Other)
  Sender: TEVA
  Company Number: None

PATIENT
  Age: 73 Year
  Sex: Female

DRUGS (1)
  1. PACLITAXEL [Suspect]
     Active Substance: PACLITAXEL
     Indication: Breast cancer
     Dosage: 80MG/WEEK: PACLITAXEL TEVA
     Route: 042
     Dates: start: 202404, end: 20240619

REACTIONS (4)
  - Hyperkalaemia [Recovered/Resolved]
  - Dysgeusia [Recovered/Resolved]
  - Mucosal inflammation [Recovered/Resolved]
  - Cancer fatigue [Recovered/Resolved]

NARRATIVE: CASE EVENT DATE: 20240401
